FAERS Safety Report 8994406 (Version 1)
Quarter: 2012Q4

REPORT INFORMATION
  Report Type: Spontaneous
  Country: US (occurrence: None)
  Receive Date: 20121227
  Receipt Date: 20121227
  Transmission Date: 20130627
  Serious: Yes (Life-Threatening)
  Sender: FDA-Public Use
  Company Number: None

PATIENT
  Age: 16 Year
  Sex: Male
  Weight: 66 kg

DRUGS (1)
  1. ADVATE [Suspect]
     Indication: HEMOPHILIA
     Dosage: Advate 25 IU/kg once IV bolus
     Route: 040
     Dates: start: 20121211, end: 20121211

REACTIONS (1)
  - Hypersensitivity [None]
